FAERS Safety Report 20126487 (Version 1)
Quarter: 2021Q4

REPORT INFORMATION
  Report Type: Spontaneous
  Country: KR (occurrence: None)
  Receive Date: 20211129
  Receipt Date: 20211129
  Transmission Date: 20220303
  Serious: Yes (Other)
  Sender: FDA-Public Use
  Company Number: 2021A832670

PATIENT
  Age: 60 Year
  Sex: Male

DRUGS (7)
  1. OLAPARIB [Suspect]
     Active Substance: OLAPARIB
     Route: 048
     Dates: start: 20180621, end: 20210127
  2. LEUPROLIDE [Concomitant]
     Active Substance: LEUPROLIDE
     Dates: start: 20160913
  3. LEUPROLIDE [Concomitant]
     Active Substance: LEUPROLIDE
     Dates: start: 20170313
  4. NADIR [Concomitant]
     Dates: start: 20161213
  5. ABIRATERONE [Concomitant]
     Active Substance: ABIRATERONE
     Dates: start: 20160613, end: 20180516
  6. ZYTIGA [Concomitant]
     Active Substance: ABIRATERONE ACETATE
  7. PREDNISOLONE [Concomitant]
     Active Substance: PREDNISOLONE

REACTIONS (2)
  - Malignant neoplasm progression [Unknown]
  - Off label use [Unknown]

NARRATIVE: CASE EVENT DATE: 20210602
